FAERS Safety Report 6118191-3 (Version None)
Quarter: 2009Q1

REPORT INFORMATION
  Report Type: 
  Country: None (occurrence: None)
  Receive Date: 20090314
  Receipt Date: 20090206
  Transmission Date: 20090719
  Serious: No
  Sender: FDA-Public Use
  Company Number: US-ABBOTT-09P-163-0502480-00

PATIENT
  Sex: Male
  Weight: 92.162 kg

DRUGS (1)
  1. HUMIRA [Suspect]
     Indication: ANKYLOSING SPONDYLITIS
     Dates: start: 20081230

REACTIONS (4)
  - HYPOAESTHESIA [None]
  - PALLOR [None]
  - PARAESTHESIA [None]
  - PERIPHERAL COLDNESS [None]
